FAERS Safety Report 15558678 (Version 2)
Quarter: 2018Q4

REPORT INFORMATION
  Report Type: Spontaneous
  Country: RU (occurrence: RU)
  Receive Date: 20181029
  Receipt Date: 20181031
  Transmission Date: 20190205
  Serious: Yes (Hospitalization)
  Sender: FDA-Public Use
  Company Number: RU-ROCHE-2205997

PATIENT
  Age: 77 Year
  Sex: Female

DRUGS (2)
  1. GAZYVA [Suspect]
     Active Substance: OBINUTUZUMAB
     Indication: IMMUNOMODULATORY THERAPY
     Route: 042
  2. LEUKERAN [Suspect]
     Active Substance: CHLORAMBUCIL
     Indication: IMMUNOMODULATORY THERAPY
     Route: 065

REACTIONS (2)
  - Myocardial infarction [Unknown]
  - Muscle spasms [Unknown]

NARRATIVE: CASE EVENT DATE: 20171003
